FAERS Safety Report 6618407-0 (Version None)
Quarter: 2010Q1

REPORT INFORMATION
  Report Type: 
  Country: None (occurrence: None)
  Receive Date: 20100308
  Receipt Date: 20100226
  Transmission Date: 20100710
  Serious: Yes (Other)
  Sender: FDA-Public Use
  Company Number: B0636407A

PATIENT
  Sex: Male

DRUGS (4)
  1. VENTOLIN [Suspect]
     Indication: ASTHMA
     Route: 055
  2. SEREVENT [Concomitant]
     Indication: ASTHMA
     Route: 065
  3. SALBUTAMOL [Concomitant]
     Indication: ASTHMA
     Route: 065
  4. PREDNISOLONE [Concomitant]
     Indication: ASTHMA
     Dosage: 40MG PER DAY
     Route: 065

REACTIONS (4)
  - ASTHMA [None]
  - DRUG INEFFECTIVE [None]
  - DYSPNOEA [None]
  - OBSTRUCTIVE AIRWAYS DISORDER [None]
